FAERS Safety Report 4835644-6 (Version None)
Quarter: 2005Q4

REPORT INFORMATION
  Report Type: 
  Country: None (occurrence: None)
  Receive Date: 20051121
  Receipt Date: 20051108
  Transmission Date: 20060501
  Serious: Yes (Other)
  Sender: FDA-Public Use
  Company Number: 2005155249

PATIENT
  Age: 27 Year
  Sex: Female

DRUGS (1)
  1. DEPO-PROVERA [Suspect]
     Indication: CONTRACEPTION
     Dosage: (150 MG, TRIMESTRAL:  1ST SINGLE INJECTION),
     Dates: start: 20050905, end: 20050905

REACTIONS (2)
  - ABDOMINAL NEOPLASM [None]
  - AMENORRHOEA [None]
